FAERS Safety Report 15103944 (Version 2)
Quarter: 2018Q3

REPORT INFORMATION
  Report Type: Spontaneous
  Country: US (occurrence: US)
  Receive Date: 20180703
  Receipt Date: 20180717
  Transmission Date: 20181010
  Serious: Yes (Other)
  Sender: FDA-Public Use
  Company Number: US-SHIRE-US201822676

PATIENT
  Sex: Female

DRUGS (2)
  1. UNISOL [Concomitant]
     Indication: PRODUCT USED FOR UNKNOWN INDICATION
  2. XIIDRA [Suspect]
     Active Substance: LIFITEGRAST
     Indication: DRY EYE
     Dosage: 1 GTT, 2X/DAY:BID (5% SOLUTION)
     Route: 047
     Dates: start: 20180616

REACTIONS (9)
  - Dry eye [Not Recovered/Not Resolved]
  - Anxiety [Not Recovered/Not Resolved]
  - Herpes ophthalmic [Not Recovered/Not Resolved]
  - Contact lens intolerance [Not Recovered/Not Resolved]
  - Instillation site pain [Not Recovered/Not Resolved]
  - Cataract [Recovered/Resolved]
  - Abnormal sensation in eye [Not Recovered/Not Resolved]
  - Visual acuity reduced [Not Recovered/Not Resolved]
  - Arthritis [Not Recovered/Not Resolved]

NARRATIVE: CASE EVENT DATE: 20180618
